FAERS Safety Report 12579258 (Version 17)
Quarter: 2018Q4

REPORT INFORMATION
  Report Type: Report from Study
  Country: CA (occurrence: CA)
  Receive Date: 20160721
  Receipt Date: 20181128
  Transmission Date: 20190204
  Serious: Yes (Hospitalization, Other)
  Sender: FDA-Public Use
  Company Number: CA-PFIZER INC-2016349024

PATIENT
  Age: 68 Year
  Sex: Female

DRUGS (13)
  1. CORTENEMA [Concomitant]
     Active Substance: HYDROCORTISONE
     Dosage: QD
     Route: 054
  2. ENTYVIO [Suspect]
     Active Substance: VEDOLIZUMAB
     Indication: COLITIS ULCERATIVE
     Dosage: 300 MG, UNK
     Route: 042
     Dates: start: 20160531
  3. ENTYVIO [Suspect]
     Active Substance: VEDOLIZUMAB
     Dosage: 300 MG, UNK
     Route: 042
  4. PLAVIX [Concomitant]
     Active Substance: CLOPIDOGREL BISULFATE
     Dosage: 75 MG, QD
     Dates: start: 2008
  5. BISOPROLOL [Concomitant]
     Active Substance: BISOPROLOL
     Dosage: 2.5 MG, QD
  6. PANTOLOC [Suspect]
     Active Substance: PANTOPRAZOLE SODIUM
     Dosage: 40 MG, 2X/DAY ([ALSO] IN THE EVENING)
     Route: 048
     Dates: start: 20160428
  7. SALOFALK [Suspect]
     Active Substance: MESALAMINE
     Indication: COLITIS
     Dosage: UNK
     Route: 065
     Dates: start: 201709
  8. EZETROL [Concomitant]
     Active Substance: EZETIMIBE
     Indication: BLOOD CHOLESTEROL INCREASED
     Dosage: 10 MG, QD
  9. SYNTHROID [Concomitant]
     Active Substance: LEVOTHYROXINE SODIUM
     Dosage: 0.088 MG, QD
  10. PANTOLOC [Suspect]
     Active Substance: PANTOPRAZOLE SODIUM
     Dosage: 40 MG, 1X/DAY (IN THE MORNING)
     Route: 048
     Dates: start: 20141114
  11. PREDNISONE. [Suspect]
     Active Substance: PREDNISONE
     Dosage: UNK
     Route: 065
  12. CALCIUM CARBONATE W/VITAMIN D NOS [Concomitant]
     Active Substance: CALCIUM CARBONATE\VITAMIN D
     Dosage: 500MG/400IU
  13. ENTYVIO [Suspect]
     Active Substance: VEDOLIZUMAB
     Dosage: 300 MG, UNK
     Route: 042

REACTIONS (17)
  - Constipation [Unknown]
  - Rectal haemorrhage [Not Recovered/Not Resolved]
  - Faecal calprotectin increased [Unknown]
  - Frequent bowel movements [Not Recovered/Not Resolved]
  - Abdominal pain [Not Recovered/Not Resolved]
  - Epistaxis [Recovered/Resolved]
  - Abnormal faeces [Not Recovered/Not Resolved]
  - Colitis ulcerative [Unknown]
  - Alopecia [Unknown]
  - Flatulence [Unknown]
  - Abdominal distension [Unknown]
  - Diarrhoea [Recovered/Resolved]
  - Condition aggravated [Unknown]
  - Haematochezia [Not Recovered/Not Resolved]
  - Chest pain [Not Recovered/Not Resolved]
  - Nervousness [Not Recovered/Not Resolved]
  - Skin fragility [Unknown]

NARRATIVE: CASE EVENT DATE: 201606
